FAERS Safety Report 5973238-X (Version None)
Quarter: 2008Q4

REPORT INFORMATION
  Report Type: 
  Country: None (occurrence: None)
  Receive Date: 20081201
  Receipt Date: 20081120
  Transmission Date: 20090506
  Serious: Yes (Other)
  Sender: FDA-Public Use
  Company Number: US-JNJCH-2008055318

PATIENT
  Age: 44 Year
  Sex: Male
  Weight: 83.9 kg

DRUGS (1)
  1. LISTERINE WHITENING QUICK DISSOLVING STRIPS [Suspect]
     Indication: DENTAL CARE
     Dosage: TEXT: 2X DAY
     Route: 048
     Dates: start: 20081116, end: 20081118

REACTIONS (1)
  - HYPERSENSITIVITY [None]
